FAERS Safety Report 6148486-9 (Version None)
Quarter: 2009Q2

REPORT INFORMATION
  Report Type: 
  Country: None (occurrence: None)
  Receive Date: 20090408
  Receipt Date: 20090331
  Transmission Date: 20091009
  Serious: Yes (Hospitalization)
  Sender: FDA-Public Use
  Company Number: PHHY2009JP03702

PATIENT
  Sex: Female
  Weight: 91 kg

DRUGS (10)
  1. DIOVAN [Suspect]
     Indication: HYPERTENSION
     Dosage: 40 MG, QD
     Route: 048
     Dates: start: 20071206, end: 20071212
  2. DIOVAN [Suspect]
     Dosage: 80 MG, QD
     Route: 048
     Dates: start: 20071213, end: 20080706
  3. METFORMIN HCL [Suspect]
     Dosage: 500 MG
     Route: 048
     Dates: start: 20071102, end: 20071204
  4. METFORMIN HCL [Suspect]
     Dosage: 750 MG
     Route: 048
     Dates: start: 20071205
  5. MIGLITOL [Suspect]
     Dosage: 225 MG
     Route: 048
     Dates: start: 20071205, end: 20080511
  6. BASEN [Concomitant]
     Dosage: 0.9 MG
     Route: 048
     Dates: start: 20071102
  7. ADALAT [Concomitant]
     Indication: HYPERTENSION
     Dosage: 20 MG
     Route: 048
     Dates: start: 20071211
  8. ADALAT [Concomitant]
     Dosage: 40 MG
     Route: 048
  9. METHYLDOPA [Concomitant]
     Dosage: 750 MG
     Dates: start: 20080707
  10. METHYLDOPA [Concomitant]
     Dosage: 1500 MG
     Route: 048
     Dates: end: 20081028

REACTIONS (5)
  - ABDOMINAL PAIN [None]
  - ABORTION [None]
  - BACK PAIN [None]
  - BLOOD PRESSURE INCREASED [None]
  - DRUG EXPOSURE DURING PREGNANCY [None]
